FAERS Safety Report 4355606-5 (Version None)
Quarter: 2004Q2

REPORT INFORMATION
  Report Type: 
  Country: None (occurrence: None)
  Receive Date: 20040510
  Receipt Date: 20040504
  Transmission Date: 20050107
  Serious: Yes (Hospitalization)
  Sender: FDA-Public Use
  Company Number: US-BRISTOL-MYERS SQUIBB COMPANY-12578076

PATIENT
  Age: 59 Year
  Sex: Male

DRUGS (9)
  1. ERBITUX [Suspect]
     Indication: COLORECTAL CANCER
     Route: 042
  2. DIPHENHYDRAMINE HCL [Concomitant]
     Indication: PREMEDICATION
     Route: 048
  3. DECADRON [Concomitant]
     Indication: PREMEDICATION
     Route: 048
  4. ENULOSE [Concomitant]
     Route: 048
     Dates: start: 20040319
  5. CLEOCIN GEL [Concomitant]
     Dates: start: 20040326
  6. DURAGESIC [Concomitant]
     Route: 062
     Dates: start: 20040326
  7. BACLOFEN [Concomitant]
     Route: 048
     Dates: start: 20040402
  8. COMPAZINE [Concomitant]
     Route: 048
     Dates: start: 20040409
  9. MEGACE [Concomitant]
     Dates: start: 20040409

REACTIONS (3)
  - CYTOMEGALOVIRUS INFECTION [None]
  - PERITONITIS [None]
  - PNEUMOCYSTIS CARINII PNEUMONIA [None]
